FAERS Safety Report 5845689-5 (Version None)
Quarter: 2008Q3

REPORT INFORMATION
  Report Type: 
  Country: None (occurrence: None)
  Receive Date: 20080814
  Receipt Date: 20080805
  Transmission Date: 20090109
  Serious: Yes (Other)
  Sender: FDA-Public Use
  Company Number: PHHY2008IT17263

PATIENT
  Sex: Male

DRUGS (3)
  1. ZOMETA [Suspect]
     Indication: METASTASES TO BONE
     Dosage: 4 MG, QMO
     Route: 042
     Dates: start: 20070502, end: 20071108
  2. TAXOTERE [Concomitant]
     Dosage: 75 MG*SQUAREMETER/BSA
     Route: 042
     Dates: start: 20070412, end: 20070927
  3. DELTACORTENE [Concomitant]
     Dosage: UNK

REACTIONS (1)
  - BONE LESION [None]
